FAERS Safety Report 5838447-9 (Version None)
Quarter: 2008Q3

REPORT INFORMATION
  Report Type: 
  Country: None (occurrence: None)
  Receive Date: 20080808
  Receipt Date: 20080805
  Transmission Date: 20090109
  Serious: Yes (Other)
  Sender: FDA-Public Use
  Company Number: GB-JNJFOC-20080705587

PATIENT
  Sex: Female
  Weight: 53 kg

DRUGS (3)
  1. NORGESTIMATE AND ETHINYL ESTRADIOL [Suspect]
     Indication: CONTRACEPTION
     Route: 048
  2. ACYCLOVIR [Interacting]
     Indication: ORAL HERPES
     Route: 065
  3. METRONIDAZOLE HCL [Concomitant]
     Indication: BACTERIAL INFECTION
     Route: 065

REACTIONS (3)
  - BACTERIAL INFECTION [None]
  - DRUG INTERACTION [None]
  - METRORRHAGIA [None]
